FAERS Safety Report 7655479-9 (Version None)
Quarter: 2011Q3

REPORT INFORMATION
  Report Type: 
  Country: None (occurrence: None)
  Receive Date: 20110804
  Receipt Date: 20110727
  Transmission Date: 20111222
  Serious: Yes (Hospitalization)
  Sender: FDA-Public Use
  Company Number: AU-ASTELLAS-2011JP005172

PATIENT
  Sex: Male

DRUGS (8)
  1. CERTICAN [Suspect]
     Dosage: 20 MG, UNKNOWN/D
     Route: 048
  2. BACTRIM [Concomitant]
     Route: 065
  3. LAMIVUDINE [Concomitant]
     Route: 065
  4. METHYLPREDNISOLONE [Concomitant]
     Route: 065
  5. PRAVASTATIN SODIUM [Concomitant]
     Route: 065
  6. ASPIRIN [Concomitant]
     Route: 065
  7. MYCOPHENOLATE MOFETIL [Concomitant]
     Route: 065
  8. TACROLIMUS [Suspect]
     Route: 065

REACTIONS (5)
  - NEUTROPHIL COUNT INCREASED [None]
  - MONOCYTE COUNT INCREASED [None]
  - LYMPHOCYTE COUNT DECREASED [None]
  - MALABSORPTION [None]
  - TRANSPLANT REJECTION [None]
